FAERS Safety Report 8205969-5 (Version None)
Quarter: 2012Q1

REPORT INFORMATION
  Report Type: 
  Country: None (occurrence: None)
  Receive Date: 20120313
  Receipt Date: 20120305
  Transmission Date: 20120608
  Serious: Yes (Hospitalization)
  Sender: FDA-Public Use
  Company Number: US-BRISTOL-MYERS SQUIBB COMPANY-16431611

PATIENT
  Age: 62 Year
  Sex: Female

DRUGS (1)
  1. YERVOY [Suspect]
     Dosage: NO OF DOSES 3 DOSES TAKEN ON 26JAN12,15FEB12
     Dates: start: 20120102

REACTIONS (4)
  - SEPSIS [None]
  - AXILLARY MASS [None]
  - SMALL INTESTINAL PERFORATION [None]
  - METASTASES TO SMALL INTESTINE [None]
